FAERS Safety Report 26206560 (Version 1)
Quarter: 2025Q4

REPORT INFORMATION
  Report Type: Spontaneous
  Country: EU (occurrence: EU)
  Receive Date: 20251229
  Receipt Date: 20251229
  Transmission Date: 20260117
  Serious: Yes (Hospitalization, Other)
  Sender: AMGEN
  Company Number: EU-BAXTER-2025BAX025795

PATIENT
  Age: 75 Year
  Sex: Female
  Weight: 38 kg

DRUGS (10)
  1. BEVACIZUMAB [Suspect]
     Active Substance: BEVACIZUMAB
     Indication: Ovarian cancer
     Dosage: 400 MG, EVERY 2 WK
     Route: 040
     Dates: start: 20250124, end: 20250508
  2. DOXORUBICIN HYDROCHLORIDE [Suspect]
     Active Substance: DOXORUBICIN HYDROCHLORIDE
     Indication: Ovarian cancer
     Dosage: 40.2 MG, EVERY 2 WK
     Route: 040
     Dates: start: 20250124
  3. MIRVETUXIMAB SORAVTANSINE [Suspect]
     Active Substance: MIRVETUXIMAB SORAVTANSINE
     Indication: Ovarian cancer
     Dosage: UNK
     Route: 065
  4. CARBOPLATIN [Suspect]
     Active Substance: CARBOPLATIN
     Indication: Ovarian cancer
     Dosage: 150 MG, EVERY 2 WK
     Route: 040
     Dates: start: 20250124
  5. OMEPRAZOLE [Concomitant]
     Active Substance: OMEPRAZOLE
     Indication: Gastrointestinal disorder prophylaxis
     Dosage: 20 MG, QD
     Route: 065
     Dates: start: 20220530
  6. ALBUTEROL [Concomitant]
     Active Substance: ALBUTEROL
     Indication: Asthma
     Dosage: 100 UG, AS NECESSARY
     Route: 065
     Dates: start: 20250909
  7. SIMVASTATIN [Concomitant]
     Active Substance: SIMVASTATIN
     Indication: Hypercholesterolaemia
     Dosage: 20 MG, QD
     Route: 065
     Dates: start: 20240909
  8. TRAMADOL [Concomitant]
     Active Substance: TRAMADOL
     Indication: Pain
     Dosage: 50 MG, 3/DAYS
     Route: 065
     Dates: start: 20250327
  9. PREGABALIN [Concomitant]
     Active Substance: PREGABALIN
     Indication: Pain
     Dosage: 25 MG,  2/DAYS
     Route: 065
     Dates: start: 20250327
  10. IPRATROPIUM [Concomitant]
     Active Substance: IPRATROPIUM
     Indication: Asthma
     Dosage: EVERY 1 DAYS
     Route: 065
     Dates: start: 20240314

REACTIONS (7)
  - Pneumonia [Recovered/Resolved]
  - Febrile neutropenia [Unknown]
  - Thrombocytopenia [Unknown]
  - Herpes simplex [Unknown]
  - Oral candidiasis [Unknown]
  - Anaemia [Unknown]
  - Stomatitis [Unknown]

NARRATIVE: CASE EVENT DATE: 20250508
